FAERS Safety Report 8878738 (Version 2)
Quarter: 2013Q3

REPORT INFORMATION
  Report Type: Spontaneous
  Country: US (occurrence: US)
  Receive Date: 20121026
  Receipt Date: 20130927
  Transmission Date: 20140515
  Serious: Yes (Other)
  Sender: FDA-Public Use
  Company Number: US-ROCHE-1148397

PATIENT
  Age: 25 Year
  Sex: Female
  Weight: 75.82 kg

DRUGS (1)
  1. ACCUTANE [Suspect]
     Indication: ACNE
     Route: 065
     Dates: start: 19990518, end: 19990920

REACTIONS (9)
  - Crohn^s disease [Unknown]
  - Pyoderma gangrenosum [Unknown]
  - Inflammatory bowel disease [Unknown]
  - Emotional distress [Unknown]
  - Intestinal haemorrhage [Unknown]
  - Intestinal obstruction [Unknown]
  - Anal fissure [Unknown]
  - Arthritis [Unknown]
  - Dry skin [Unknown]
